FAERS Safety Report 7296272-9 (Version None)
Quarter: 2011Q1

REPORT INFORMATION
  Report Type: 
  Country: None (occurrence: None)
  Receive Date: 20110216
  Receipt Date: 20110208
  Transmission Date: 20110831
  Serious: Yes (Other)
  Sender: FDA-Public Use
  Company Number: GB-JNJFOC-20110202529

PATIENT
  Age: 57 Year
  Sex: Male

DRUGS (4)
  1. INVESTIGATIONAL DRUG [Suspect]
     Indication: METASTATIC MALIGNANT MELANOMA
     Dosage: 74 INTRAVENOUS 750-MG DOSES OVER 18  MONTHS.
     Route: 042
  2. RAMIPRIL [Suspect]
     Indication: HYPERTENSION
  3. IBUPROFEN [Suspect]
     Indication: PRODUCT USED FOR UNKNOWN INDICATION
  4. ATENOLOL [Concomitant]
     Indication: HYPERTENSION

REACTIONS (1)
  - RENAL TUBULAR NECROSIS [None]
